FAERS Safety Report 9140889 (Version 1)
Quarter: 2013Q1

REPORT INFORMATION
  Report Type: Spontaneous
  Country: US (occurrence: US)
  Receive Date: 20130305
  Receipt Date: 20130305
  Transmission Date: 20140127
  Serious: Yes (Other)
  Sender: FDA-Public Use
  Company Number: CHPA2013US003877

PATIENT
  Age: 82 Year
  Sex: Female

DRUGS (4)
  1. EXCEDRIN EXTRA STRENGTH [Suspect]
     Indication: MIGRAINE
     Dosage: 0.33 DF, Q3H PRN
     Route: 048
  2. VITAMIIN C [Concomitant]
  3. MAGNESIUM [Concomitant]
  4. OMEGA                                   /ARG/ [Concomitant]
     Dosage: UNK, QD

REACTIONS (4)
  - Cystitis [Unknown]
  - Nervousness [Unknown]
  - Inappropriate schedule of drug administration [Unknown]
  - Underdose [Unknown]
